FAERS Safety Report 4594770-X (Version None)
Quarter: 2005Q1

REPORT INFORMATION
  Report Type: 
  Country: None (occurrence: None)
  Receive Date: 20050223
  Receipt Date: 20050207
  Transmission Date: 20050727
  Serious: Yes (Hospitalization)
  Sender: FDA-Public Use
  Company Number: SP00395

PATIENT

DRUGS (1)
  1. XIFAXAN [Suspect]
     Dates: start: 20050201, end: 20050201

REACTIONS (1)
  - ANAPHYLACTIC SHOCK [None]
